FAERS Safety Report 9666311 (Version 5)
Quarter: 2014Q1

REPORT INFORMATION
  Report Type: Spontaneous
  Country: GB (occurrence: GB)
  Receive Date: 20131104
  Receipt Date: 20140320
  Transmission Date: 20141002
  Serious: Yes (Hospitalization)
  Sender: FDA-Public Use
  Company Number: GB-NOVOPROD-390711

PATIENT
  Age: 42 Year
  Sex: Female
  Weight: 91.16 kg

DRUGS (16)
  1. NORDITROPIN SIMPLEXX [Suspect]
     Indication: DIABETES INSIPIDUS
     Dosage: 0.4 MG, QD
     Route: 065
     Dates: start: 200906
  2. NORDITROPIN SIMPLEXX [Suspect]
     Dosage: 0.4 MG, QD
     Route: 065
     Dates: start: 20130822, end: 20131025
  3. NOVORAPID FLEXPEN [Suspect]
     Indication: DIABETES INSIPIDUS
     Dosage: 10-20 UNITS AFTER EATING
     Route: 065
     Dates: start: 201109
  4. NOVORAPID FLEXPEN [Suspect]
     Dosage: 100 UNITS/ML SOLUTION FOR INJECTION 3ML PRE-FILLED PEN
     Route: 065
     Dates: start: 20111024
  5. NOVORAPID FLEXPEN [Suspect]
     Dosage: 100 UNITS/ML SOLUTION FOR INJECTION 3ML PRE-FILLED PEN
     Route: 065
     Dates: start: 20130822, end: 20131025
  6. NOVORAPID FLEXPEN [Suspect]
     Dosage: UNK
     Route: 065
  7. LANTUS [Concomitant]
     Indication: DIABETES INSIPIDUS
     Dosage: 100 UNITS/ML SOLUTION FOR INJECTION 3ML PRE-FILLED SOLOSTAR PEN, 10 PACKS OF 5 X 3ML DISPOSABLE PEN
     Dates: start: 20130822
  8. DESMOSPRAY                         /00361901/ [Concomitant]
     Indication: PRODUCT USED FOR UNKNOWN INDICATION
     Dosage: 10 ?G, PRN
     Route: 045
     Dates: start: 20130822, end: 20130902
  9. CANDESARTAN [Concomitant]
     Indication: PRODUCT USED FOR UNKNOWN INDICATION
     Dosage: 4 MG, QD
     Dates: start: 20130822, end: 20130902
  10. LEVOTHYROXINE [Concomitant]
     Indication: PRODUCT USED FOR UNKNOWN INDICATION
     Dosage: 100 ?G, BID
     Dates: start: 20130822, end: 20130902
  11. HYDROCORTISONE [Concomitant]
     Indication: PRODUCT USED FOR UNKNOWN INDICATION
     Dosage: 30.5 MG, QD
  12. HYDROCORTISONE [Concomitant]
     Dosage: USE AS DIRECTED TO BE TAKEN EACH MORNING 1 LUNCH AND 1/2 TEA TIME
     Dates: start: 20130822, end: 20131025
  13. MICROGYNON                         /00022701/ [Concomitant]
     Indication: PRODUCT USED FOR UNKNOWN INDICATION
     Dosage: UNK
     Dates: start: 20130822
  14. LANSOPRAZOLE [Concomitant]
     Indication: PRODUCT USED FOR UNKNOWN INDICATION
     Dosage: 30 MG, QD
     Dates: start: 20131010, end: 20131211
  15. GLICLAZIDE [Concomitant]
     Indication: PRODUCT USED FOR UNKNOWN INDICATION
     Dosage: 80 MG, QD
  16. BYDUREON [Concomitant]
     Dosage: 2MG POWDER AND SOLVENT FOR SUSPENSION FOR INJECTION VIALS
     Dates: start: 20130130

REACTIONS (6)
  - Pseudomonas aeruginosa meningitis [Recovered/Resolved]
  - Nausea [Not Recovered/Not Resolved]
  - Vomiting [Not Recovered/Not Resolved]
  - Decreased appetite [Not Recovered/Not Resolved]
  - Headache [Not Recovered/Not Resolved]
  - Device malfunction [Unknown]
